FAERS Safety Report 9192321 (Version 2)
Quarter: 2013Q3

REPORT INFORMATION
  Report Type: Spontaneous
  Country: JP (occurrence: None)
  Receive Date: 20130312
  Receipt Date: 20130823
  Transmission Date: 20140515
  Serious: Yes (Hospitalization)
  Sender: FDA-Public Use
  Company Number: 0236651

PATIENT
  Age: 44 Year
  Sex: Female

DRUGS (5)
  1. TACHOSIL [Suspect]
     Indication: PROPHYLAXIS
     Dosage: 1 SHEET OF REGULAR SIZE
     Dates: start: 20130121
  2. FEROTYM (TABLETS) [Concomitant]
  3. MUCOSTA (REBAMIPIDE) (TABLETS) [Concomitant]
  4. FESIN (SACCHARATED IRON OXIDE) (AMPOULES) [Concomitant]
  5. BERIPLAST P (FACTOR XIII (FIBRIN STABILISING FACTOR)) [Concomitant]

REACTIONS (5)
  - Hepatic function abnormal [None]
  - Pyrexia [None]
  - Aspartate aminotransferase increased [None]
  - Alanine aminotransferase increased [None]
  - Blood bilirubin decreased [None]
